FAERS Safety Report 6276584-8 (Version None)
Quarter: 2009Q3

REPORT INFORMATION
  Report Type: 
  Country: None (occurrence: None)
  Receive Date: 20090722
  Receipt Date: 20080725
  Transmission Date: 20100115
  Serious: No
  Sender: FDA-Public Use
  Company Number: US-BRISTOL-MYERS SQUIBB COMPANY-14162564

PATIENT
  Age: 82 Year
  Sex: Female
  Weight: 33 kg

DRUGS (1)
  1. COUMADIN [Suspect]
     Indication: CEREBROVASCULAR ACCIDENT
     Dates: start: 20071221

REACTIONS (3)
  - ASTHENIA [None]
  - FLUID RETENTION [None]
  - JOINT SWELLING [None]
